FAERS Safety Report 19382180 (Version 1)
Quarter: 2021Q2

REPORT INFORMATION
  Report Type: Spontaneous
  Country: JP (occurrence: JP)
  Receive Date: 20210607
  Receipt Date: 20210607
  Transmission Date: 20210717
  Serious: Yes (Other)
  Sender: FDA-Public Use
  Company Number: JP-JNJFOC-20210227344

PATIENT
  Age: 69 Year
  Sex: Female

DRUGS (12)
  1. DEXAMETHASONE. [Concomitant]
     Active Substance: DEXAMETHASONE
     Indication: LEUKAEMIA
     Dosage: DOSE UNKNOWN,VPD 3 CYCLE
     Route: 065
     Dates: start: 20210216, end: 2021
  2. DEXAMETHASONE. [Concomitant]
     Active Substance: DEXAMETHASONE
     Indication: LEUKAEMIA
     Dosage: DOSE UNKNOWN, DLD 1 CYCLE
     Route: 065
     Dates: start: 202103, end: 2021
  3. VELCADE [Suspect]
     Active Substance: BORTEZOMIB
     Indication: LEUKAEMIA
     Dosage: VPD 1 CYCLE,2 CYCLE
     Route: 058
  4. DARATUMUMAB [Suspect]
     Active Substance: DARATUMUMAB
     Indication: LEUKAEMIA
     Dosage: DOSE UNKNOWN, DLD 1 CYCLE
     Route: 041
     Dates: start: 202103, end: 2021
  5. LENALIDOMIDE [Concomitant]
     Active Substance: LENALIDOMIDE
     Dosage: DOSE UNKNOWN, DLD 2 CYCLE
     Route: 048
     Dates: start: 20210406, end: 2021
  6. POMALIDOMIDE [Concomitant]
     Active Substance: POMALIDOMIDE
     Indication: LEUKAEMIA
     Dosage: VPD 3 CYCLE
     Route: 048
     Dates: start: 20210216, end: 2021
  7. DARATUMUMAB [Suspect]
     Active Substance: DARATUMUMAB
     Dosage: DOSE UNKNOWN, DLD 2 CYCLE
     Route: 041
     Dates: start: 20210406, end: 2021
  8. VELCADE [Suspect]
     Active Substance: BORTEZOMIB
     Indication: LEUKAEMIA
     Dosage: VPD 3 CYCLE
     Route: 058
     Dates: start: 20210216, end: 2021
  9. POMALIDOMIDE [Concomitant]
     Active Substance: POMALIDOMIDE
     Indication: LEUKAEMIA
     Dosage: VPD 1 CYCLE,2 CYCLE
     Route: 048
  10. DEXAMETHASONE. [Concomitant]
     Active Substance: DEXAMETHASONE
     Indication: LEUKAEMIA
     Dosage: DOSE UNKNOWN, DLD 2 CYCLE
     Route: 065
     Dates: start: 20210406, end: 2021
  11. DEXAMETHASONE. [Concomitant]
     Active Substance: DEXAMETHASONE
     Indication: LEUKAEMIA
     Dosage: DOSE UNKNOWN, VPD 1 CYCLE,2 CYCLE
     Route: 065
  12. LENALIDOMIDE [Concomitant]
     Active Substance: LENALIDOMIDE
     Indication: LEUKAEMIA
     Dosage: DOSE UNKNOWN, DLD 1 CYCLE
     Route: 048
     Dates: start: 202103, end: 2021

REACTIONS (2)
  - Pain of skin [Unknown]
  - Neuropathy peripheral [Recovered/Resolved]
